FAERS Safety Report 12682905 (Version 1)
Quarter: 2016Q3

REPORT INFORMATION
  Report Type: Spontaneous
  Country: US (occurrence: None)
  Receive Date: 20160824
  Receipt Date: 20160824
  Transmission Date: 20161109
  Serious: Yes (Other)
  Sender: FDA-Public Use
  Company Number: None

PATIENT
  Age: 71 Year
  Sex: Female
  Weight: 79.38 kg

DRUGS (18)
  1. METHADONE HCL 10 MG, 10 MG [Suspect]
     Active Substance: METHADONE HYDROCHLORIDE
     Indication: PAIN
     Dosage: 224 TABLET(S) 3 AM, 2 PM, 3 BEDT TAKEN BY MOUTH
     Route: 048
     Dates: start: 20160801
  2. DOXYCYCLINE HYCLATE. [Concomitant]
     Active Substance: DOXYCYCLINE HYCLATE
  3. KLOR-CON [Concomitant]
     Active Substance: POTASSIUM CHLORIDE
  4. FUROSEMIDE. [Concomitant]
     Active Substance: FUROSEMIDE
  5. PRAVASTATIN SODIUM. [Concomitant]
     Active Substance: PRAVASTATIN SODIUM
  6. ST. JOHN^S WORT [Concomitant]
     Active Substance: ST. JOHN^S WORT
  7. OMEGA-3 KRILL OIL [Concomitant]
  8. DIGOX [Concomitant]
     Active Substance: DIGOXIN
  9. METHADONE HCL [Concomitant]
     Active Substance: METHADONE HYDROCHLORIDE
  10. ELIQUIS [Concomitant]
     Active Substance: APIXABAN
  11. MULTIVITAMIN/MULTIMINERAL [Concomitant]
     Active Substance: MINERALS\VITAMINS
  12. VITAMIN D3 [Concomitant]
     Active Substance: CHOLECALCIFEROL
  13. CALTRATE [Concomitant]
     Active Substance: CALCIUM CARBONATE
  14. LEVOTHYROXINE. [Concomitant]
     Active Substance: LEVOTHYROXINE
  15. ZOFRAN [Concomitant]
     Active Substance: ONDANSETRON HYDROCHLORIDE
  16. DIOVAN [Concomitant]
     Active Substance: VALSARTAN
  17. OXYCODONE [Concomitant]
     Active Substance: OXYCODONE
  18. POTASSIUM CL ER [Concomitant]
     Active Substance: POTASSIUM CHLORIDE

REACTIONS (2)
  - Product substitution issue [None]
  - Drug effect decreased [None]

NARRATIVE: CASE EVENT DATE: 20160805
